FAERS Safety Report 17570244 (Version 1)
Quarter: 2020Q1

REPORT INFORMATION
  Report Type: Spontaneous
  Country: FR (occurrence: FR)
  Receive Date: 20200323
  Receipt Date: 20200323
  Transmission Date: 20200409
  Serious: Yes (Hospitalization)
  Sender: FDA-Public Use
  Company Number: FR-ACCORD-176692

PATIENT
  Age: 3 Year
  Sex: Female
  Weight: 14 kg

DRUGS (2)
  1. VINCRISTINE TEVA [Suspect]
     Active Substance: VINCRISTINE
     Indication: NEUROBLASTOMA
     Route: 042
     Dates: start: 20200211, end: 20200211
  2. CISPLATIN ACCORD [Suspect]
     Active Substance: CISPLATIN
     Indication: NEUROBLASTOMA
     Route: 042
     Dates: start: 20200211, end: 20200211

REACTIONS (2)
  - Off label use [Unknown]
  - Disseminated intravascular coagulation [Recovering/Resolving]

NARRATIVE: CASE EVENT DATE: 20200213
